FAERS Safety Report 8103266-X (Version None)
Quarter: 2012Q1

REPORT INFORMATION
  Report Type: 
  Country: None (occurrence: None)
  Receive Date: 20120201
  Receipt Date: 20101213
  Transmission Date: 20120608
  Serious: No
  Sender: FDA-Public Use
  Company Number: US-MUTUAL PHARMACEUTICAL COMPANY, INC.-2010P1003295

PATIENT
  Sex: Female
  Weight: 65.77 kg

DRUGS (10)
  1. PREDNISONE TAB [Suspect]
     Route: 048
     Dates: start: 20101123
  2. NADOLOL [Suspect]
     Route: 048
  3. NORVASC [Suspect]
     Route: 048
  4. AMITRIPTYLINE HCL [Suspect]
     Route: 048
  5. PERCOCET [Suspect]
     Route: 048
  6. HYDROCHLOROTHIAZIDE [Suspect]
     Route: 048
  7. CELEXA [Suspect]
     Route: 048
  8. HYZAAR [Suspect]
     Route: 048
  9. FLEXERIL [Suspect]
  10. CORTISONE ACETATE INJ [Suspect]
     Dates: start: 20101123, end: 20101123

REACTIONS (19)
  - DEPRESSED MOOD [None]
  - CRYING [None]
  - HEADACHE [None]
  - PALPITATIONS [None]
  - INCREASED APPETITE [None]
  - BLOOD PRESSURE INCREASED [None]
  - CHEST PAIN [None]
  - ABDOMINAL PAIN UPPER [None]
  - MIDDLE INSOMNIA [None]
  - SWELLING FACE [None]
  - ANXIETY [None]
  - HEART RATE INCREASED [None]
  - MICTURITION URGENCY [None]
  - WEIGHT INCREASED [None]
  - NERVOUSNESS [None]
  - NIGHT SWEATS [None]
  - TREMOR [None]
  - INCONTINENCE [None]
  - AGITATION [None]
